FAERS Safety Report 8173636-2 (Version None)
Quarter: 2012Q1

REPORT INFORMATION
  Report Type: 
  Country: None (occurrence: None)
  Receive Date: 20120229
  Receipt Date: 20120221
  Transmission Date: 20120608
  Serious: Yes (Hospitalization)
  Sender: FDA-Public Use
  Company Number: US-UCBSA-047082

PATIENT
  Age: 81 Year
  Sex: Female
  Weight: 108.1 kg

DRUGS (41)
  1. VOLTAREN [Concomitant]
     Indication: OSTEOARTHRITIS
     Dosage: 1 APPLICAITON AS NESSECARY
     Dates: start: 20110401
  2. ZANTAC [Concomitant]
     Indication: GASTROOESOPHAGEAL REFLUX DISEASE
     Dosage: EVERY NIGHT AT BEDTIME
     Dates: start: 20100101
  3. ASPIRIN [Concomitant]
     Dates: start: 20061101, end: 20111019
  4. KLONOPIN [Concomitant]
     Indication: ANXIETY
     Dates: start: 20111029
  5. LEVAQUIN [Concomitant]
     Route: 042
     Dates: start: 20111022, end: 20111024
  6. LEVAQUIN [Concomitant]
     Route: 042
     Dates: start: 20111203, end: 20111204
  7. LEVAQUIN [Concomitant]
     Dates: start: 20111208
  8. CARDIZEM [Concomitant]
     Dates: start: 20061101, end: 20111019
  9. CERTOLIZUMAB PEGOL [Suspect]
     Indication: RHEUMATOID ARTHRITIS
     Dosage: NO OF DOSES RECEIVED 4
     Route: 058
     Dates: start: 20111005, end: 20111219
  10. PLAVIX [Concomitant]
     Indication: CORONARY ARTERY DISEASE
     Dates: start: 20061101
  11. HALDOL [Concomitant]
     Indication: TARDIVE DYSKINESIA
     Dates: start: 20100101
  12. FLOVENT [Concomitant]
     Indication: ASTHMA
     Dosage: 1 PUFF=220 MCG
     Route: 055
     Dates: start: 20111204
  13. VITAMIN D [Concomitant]
     Indication: MINERAL SUPPLEMENTATION
     Dates: start: 20111205, end: 20111206
  14. VITAMIN D [Concomitant]
     Dates: start: 20111101
  15. VITAMIN D [Concomitant]
     Dates: start: 20110607, end: 20111001
  16. VITAMIN D [Concomitant]
     Dates: start: 20110607, end: 20111019
  17. SERTRALINE HYDROCHLORIDE [Concomitant]
     Indication: DEPRESSION
     Dates: start: 20110101
  18. FOLIC ACID [Concomitant]
     Indication: MINERAL SUPPLEMENTATION
     Dates: start: 20080201
  19. ASCORBIC ACID [Concomitant]
     Dates: start: 20111029
  20. LEVAQUIN [Concomitant]
     Dates: start: 20111024, end: 20111030
  21. LEVAQUIN [Concomitant]
     Route: 042
     Dates: start: 20111206, end: 20111208
  22. VICODIN [Concomitant]
     Indication: RHEUMATOID ARTHRITIS
     Dosage: DOSE PER INTAKE : 1 TAB; FREQENECY : AS NEEDED
     Dates: start: 20110401
  23. METHOTREXATE [Concomitant]
     Indication: RHEUMATOID ARTHRITIS
     Dates: start: 20101101
  24. GLIPIZIDE [Concomitant]
     Dates: start: 20111101, end: 20120203
  25. TYLENOL-500 [Concomitant]
     Indication: RHEUMATOID ARTHRITIS
     Dosage: AS NESSECARY
     Dates: start: 20090101
  26. ASPIRIN [Concomitant]
     Indication: CARDIOVASCULAR EVENT PROPHYLAXIS
     Dates: start: 20111026
  27. LEVAQUIN [Concomitant]
     Indication: URINARY TRACT INFECTION
     Dates: start: 20111019, end: 20111022
  28. ADVAIR DISKUS 100/50 [Concomitant]
     Indication: ASTHMA
     Dosage: DOSE PER INTAKE : 1 PUFF, FORM: INHALATION
     Route: 055
     Dates: start: 20060101, end: 20111203
  29. ALLEGRA [Concomitant]
     Indication: SEASONAL ALLERGY
     Dates: start: 20030101
  30. ASPIRIN [Concomitant]
     Dates: start: 20111020, end: 20111025
  31. FLOVENT [Concomitant]
     Dosage: 1 PUFF=110 MCG
     Route: 055
     Dates: start: 20111025, end: 20111203
  32. SIMVASTATIN [Concomitant]
     Indication: HYPERCHOLESTEROLAEMIA
     Dates: start: 20080401
  33. CERTOLIZUMAB PEGOL [Suspect]
     Dosage: NO OF DOSES RECEIVED 3
     Route: 058
     Dates: start: 20110823, end: 20110920
  34. GLIPIZIDE [Concomitant]
     Indication: TYPE 2 DIABETES MELLITUS
     Dates: start: 20090501, end: 20111101
  35. VISTARIL [Concomitant]
     Indication: ANXIETY
     Dosage: AS NESSECARY
     Dates: start: 20030101
  36. KLONOPIN [Concomitant]
     Dates: start: 20101001, end: 20111028
  37. METFORMIN HCL [Concomitant]
     Indication: TYPE 2 DIABETES MELLITUS
     Dates: start: 20100601, end: 20111101
  38. METFORMIN HCL [Concomitant]
     Dates: start: 20111101, end: 20111204
  39. LISINOPRIL [Concomitant]
     Indication: HYPERTENSION
     Dates: start: 20081201
  40. CARDIZEM [Concomitant]
     Indication: HYPERTENSION
     Dates: start: 20111025
  41. ASCORBIC ACID [Concomitant]
     Dates: start: 20050101, end: 20111019

REACTIONS (1)
  - SEPSIS [None]
